FAERS Safety Report 4938258-2 (Version None)
Quarter: 2006Q1

REPORT INFORMATION
  Report Type: 
  Country: None (occurrence: None)
  Receive Date: 20060309
  Receipt Date: 20060228
  Transmission Date: 20060701
  Serious: Yes (Hospitalization)
  Sender: FDA-Public Use
  Company Number: AU-ROCHE-438405

PATIENT
  Age: 66 Year
  Sex: Female
  Weight: 126 kg

DRUGS (14)
  1. CEFTRIAXONE SODIUM [Suspect]
     Indication: DRUG USE FOR UNKNOWN INDICATION
     Dosage: DAILY.
     Route: 042
     Dates: start: 20050325, end: 20050329
  2. FLOXACILLIN SODIUM [Suspect]
     Indication: DRUG USE FOR UNKNOWN INDICATION
     Dosage: DAILY.
     Route: 042
     Dates: start: 20050323, end: 20050324
  3. AMIODARONE HYDROCHLORIDE [Concomitant]
  4. DILATREND [Concomitant]
  5. LANOXIN [Concomitant]
  6. HEPARIN SODIUM [Concomitant]
     Indication: PROPHYLAXIS
  7. TRITACE [Concomitant]
  8. ALDACTONE [Concomitant]
  9. TEMAZEPAM [Concomitant]
     Indication: SLEEP DISORDER
  10. TAMOXIFEN CITRATE [Concomitant]
  11. LASIX [Concomitant]
  12. NOVOMIX 30 [Concomitant]
     Indication: DIABETES MELLITUS
  13. WARFARIN SODIUM [Concomitant]
  14. ASPIRIN [Concomitant]

REACTIONS (5)
  - EOSINOPHILIA [None]
  - FACE OEDEMA [None]
  - OEDEMA PERIPHERAL [None]
  - PYREXIA [None]
  - URTICARIA [None]
